FAERS Safety Report 8344452-3 (Version None)
Quarter: 2012Q2

REPORT INFORMATION
  Report Type: 
  Country: None (occurrence: None)
  Receive Date: 20120508
  Receipt Date: 20120430
  Transmission Date: 20120825
  Serious: Yes (Hospitalization, Other)
  Sender: FDA-Public Use
  Company Number: US-ABBOTT-12P-163-0931870-00

PATIENT
  Sex: Male
  Weight: 63.56 kg

DRUGS (2)
  1. VITAMIN TAB [Concomitant]
     Indication: VITAMIN SUPPLEMENTATION
  2. HUMIRA [Suspect]
     Indication: CROHN'S DISEASE
     Route: 058
     Dates: start: 20120301

REACTIONS (6)
  - INTESTINAL STENOSIS [None]
  - PYREXIA [None]
  - ESCHERICHIA INFECTION [None]
  - STRESS [None]
  - ENTEROVESICAL FISTULA [None]
  - VOMITING [None]
